FAERS Safety Report 13836342 (Version 1)
Quarter: 2017Q3

REPORT INFORMATION
  Report Type: Spontaneous
  Country: IR (occurrence: IR)
  Receive Date: 20170804
  Receipt Date: 20170804
  Transmission Date: 20171127
  Serious: Yes (Other)
  Sender: FDA-Public Use
  Company Number: PHHY2017IR113308

PATIENT
  Sex: Female

DRUGS (5)
  1. N ACETYL CYSTEINE [Suspect]
     Active Substance: ACETYLCYSTEINE
     Indication: OVULATION INDUCTION
     Dosage: 1.2 G, QD
     Route: 048
  2. CLOMID [Suspect]
     Active Substance: CLOMIPHENE CITRATE
     Indication: OVULATION INDUCTION
     Dosage: 100 MG, UNK
     Route: 065
  3. PROFASI [Suspect]
     Active Substance: GONADOTROPHIN, CHORIONIC
     Indication: OVULATION INDUCTION
     Dosage: 10000 IU, UNK
     Route: 030
  4. GONAL-F [Suspect]
     Active Substance: FOLLITROPIN
     Indication: OVULATION INDUCTION
     Dosage: 75 IU, UNK
     Route: 058
  5. FEMARA [Suspect]
     Active Substance: LETROZOLE
     Indication: OVULATION INDUCTION
     Dosage: 5 MG, UNK
     Route: 065

REACTIONS (3)
  - Abortion [Unknown]
  - Product use in unapproved indication [Unknown]
  - Maternal exposure during pregnancy [Unknown]
